FAERS Safety Report 5735156-1 (Version None)
Quarter: 2008Q2

REPORT INFORMATION
  Report Type: 
  Country: None (occurrence: None)
  Receive Date: 20080512
  Receipt Date: 20080505
  Transmission Date: 20081010
  Serious: Yes (Hospitalization)
  Sender: FDA-Public Use
  Company Number: FR-ROCHE-562956

PATIENT
  Sex: Male

DRUGS (29)
  1. CYMEVAN [Suspect]
     Indication: DRUG USE FOR UNKNOWN INDICATION
     Route: 065
     Dates: start: 20071226, end: 20080103
  2. CYMEVAN [Suspect]
     Route: 065
     Dates: start: 20071226, end: 20080103
  3. ARACYTINE [Suspect]
     Indication: DRUG USE FOR UNKNOWN INDICATION
     Dosage: FORM: INJECTABLE SOLUTION
     Route: 042
     Dates: start: 20071225, end: 20071226
  4. TEMODAL [Suspect]
     Indication: DRUG USE FOR UNKNOWN INDICATION
     Dosage: FORM: INJECTABLE SOLUTION
     Route: 042
     Dates: start: 20071224, end: 20071228
  5. TEMODAL [Suspect]
     Route: 042
     Dates: start: 20080121, end: 20080125
  6. METHOTREXATE [Suspect]
     Indication: DRUG USE FOR UNKNOWN INDICATION
     Route: 042
     Dates: start: 20071224, end: 20071224
  7. METHOTREXATE [Suspect]
     Route: 042
     Dates: start: 20080122
  8. BACTRIM [Concomitant]
     Route: 048
     Dates: start: 20071201
  9. BACTRIM [Concomitant]
     Route: 048
     Dates: start: 20071201
  10. KALETRA [Concomitant]
     Dates: start: 20070701, end: 20080104
  11. KALETRA [Concomitant]
     Dates: start: 20080105
  12. KALETRA [Concomitant]
     Dates: start: 20070701, end: 20080104
  13. KALETRA [Concomitant]
     Dates: start: 20080105
  14. TRUVADA [Concomitant]
     Dates: start: 20070701, end: 20080104
  15. TRUVADA [Concomitant]
     Dates: start: 20070701, end: 20080104
  16. LOVENOX [Concomitant]
     Dates: start: 20070901
  17. VALSARTAN AND HYDROCHLOROTHIAZIDE [Concomitant]
  18. VALSARTAN AND HYDROCHLOROTHIAZIDE [Concomitant]
  19. NEUPOGEN [Concomitant]
     Dates: start: 20080101, end: 20080102
  20. NEUPOGEN [Concomitant]
     Dates: start: 20080104, end: 20080108
  21. FOSCAVIR [Concomitant]
     Dates: start: 20080104
  22. GRANOCYTE [Concomitant]
     Dates: start: 20080115, end: 20080125
  23. GRANOCYTE [Concomitant]
     Dosage: DAILY
     Dates: start: 20080127, end: 20080203
  24. COMBIVIR [Concomitant]
     Dates: start: 20080105
  25. COMBIVIR [Concomitant]
     Dates: start: 20080105
  26. DEROXAT [Concomitant]
     Dates: start: 20080125, end: 20080203
  27. LEDERFOLIN [Concomitant]
  28. LEDERFOLIN [Concomitant]
  29. KEPPRA [Concomitant]

REACTIONS (1)
  - APLASIA [None]
